FAERS Safety Report 17023155 (Version 3)
Quarter: 2020Q1

REPORT INFORMATION
  Report Type: Report from Study
  Country: US (occurrence: US)
  Receive Date: 20191112
  Receipt Date: 20200328
  Transmission Date: 20200409
  Serious: Yes (Hospitalization)
  Sender: FDA-Public Use
  Company Number: NVSC2019US031514

PATIENT
  Sex: Male
  Weight: 62.6 kg

DRUGS (3)
  1. TREPROSTINIL. [Suspect]
     Active Substance: TREPROSTINIL
     Dosage: 19.5 NANOGRAM PER KILOGRAM/ MIN, CONTINUOUS
     Route: 042
  2. ADEMPAS [Concomitant]
     Active Substance: RIOCIGUAT
     Indication: PRODUCT USED FOR UNKNOWN INDICATION
     Route: 065
  3. TREPROSTINIL. [Suspect]
     Active Substance: TREPROSTINIL
     Indication: PULMONARY ARTERIAL HYPERTENSION
     Dosage: 19.5 NANOGRAM PER KILOGRAM/ MIN, CONTINUOUS
     Route: 042
     Dates: start: 20191008

REACTIONS (4)
  - Peripheral swelling [Unknown]
  - Decreased appetite [Unknown]
  - Joint swelling [Unknown]
  - Dyspepsia [Not Recovered/Not Resolved]
